FAERS Safety Report 6402923-0 (Version None)
Quarter: 2009Q4

REPORT INFORMATION
  Report Type: 
  Country: None (occurrence: None)
  Receive Date: 20091014
  Receipt Date: 20091014
  Transmission Date: 20100525
  Serious: No
  Sender: FDA-Public Use
  Company Number: None

PATIENT
  Age: 77 Year
  Sex: Female
  Weight: 79.3795 kg

DRUGS (1)
  1. SIMVASTATIN [Suspect]
     Dosage: 20 MG 1 A DAY BY MOUTH LATE JAN - LATE JULY
     Route: 048
     Dates: start: 20090101, end: 20090701

REACTIONS (1)
  - CONTUSION [None]
